FAERS Safety Report 8915718 (Version 1)
Quarter: 2012Q4

REPORT INFORMATION
  Report Type: Report from Study
  Country: US (occurrence: US)
  Receive Date: 20121119
  Receipt Date: 20121119
  Transmission Date: 20130627
  Serious: Yes (Hospitalization)
  Sender: FDA-Public Use
  Company Number: US-TEVA-2011000752

PATIENT
  Age: 74 Year
  Sex: Male

DRUGS (5)
  1. TREANDA [Suspect]
     Indication: CHRONIC LYMPHOCYTIC LEUKAEMIA
     Route: 042
     Dates: start: 20110110, end: 20110111
  2. LEVOTHYROXINE [Concomitant]
  3. DICLOFENAC [Concomitant]
  4. OMEPRAZOLE [Concomitant]
  5. TERAZOSIN [Concomitant]

REACTIONS (6)
  - Pancytopenia [Recovered/Resolved]
  - Atrial fibrillation [Recovered/Resolved]
  - Asthenia [Recovered/Resolved]
  - Malaise [Recovered/Resolved]
  - Dehydration [Recovered/Resolved]
  - Renal failure acute [Recovered/Resolved]
